FAERS Safety Report 7192593-9 (Version None)
Quarter: 2010Q4

REPORT INFORMATION
  Report Type: 
  Country: None (occurrence: None)
  Receive Date: 20101223
  Receipt Date: 20100826
  Transmission Date: 20110411
  Serious: Yes (Other)
  Sender: FDA-Public Use
  Company Number: US-AMGEN-QUU434526

PATIENT

DRUGS (10)
  1. ENBREL [Suspect]
     Indication: RHEUMATOID ARTHRITIS
     Dosage: 50 MG, QWK
     Route: 058
     Dates: start: 20070101, end: 20100801
  2. ACETAMINOPHEN [Concomitant]
  3. AMLODIPINE BESYLATE [Concomitant]
  4. ATENOLOL [Concomitant]
  5. CALCIUM CITRATE [Concomitant]
  6. MULTIVITAMIN [Concomitant]
     Dosage: UNK UNK, QD
  7. LEFLUNOMIDE [Concomitant]
  8. LETROZOLE [Concomitant]
  9. OMEPRAZOLE [Concomitant]
  10. ACTONEL [Concomitant]

REACTIONS (1)
  - NON-HODGKIN'S LYMPHOMA [None]
